FAERS Safety Report 23159946 (Version 2)
Quarter: 2023Q4

REPORT INFORMATION
  Report Type: Report from Study
  Country: CA (occurrence: CA)
  Receive Date: 20231108
  Receipt Date: 20231113
  Transmission Date: 20240110
  Serious: Yes (Other)
  Sender: FDA-Public Use
  Company Number: CA-MYLANLABS-2022M1144866

PATIENT

DRUGS (2)
  1. HULIO [Suspect]
     Active Substance: ADALIMUMAB-FKJP
     Indication: Hidradenitis
     Dosage: 40 MILLIGRAM, QW
     Route: 058
     Dates: start: 20220413
  2. HULIO [Suspect]
     Active Substance: ADALIMUMAB-FKJP
     Dosage: 80 MILLIGRAM, QW
     Route: 058
     Dates: start: 20220413

REACTIONS (4)
  - Renal impairment [Unknown]
  - Renal disorder [Unknown]
  - Off label use [Unknown]
  - Therapy interrupted [Unknown]
